FAERS Safety Report 5311841-0 (Version None)
Quarter: 2007Q2

REPORT INFORMATION
  Report Type: 
  Country: None (occurrence: None)
  Receive Date: 20070430
  Receipt Date: 20060317
  Transmission Date: 20071010
  Serious: No
  Sender: FDA-Public Use
  Company Number: 2006UW04642

PATIENT
  Age: 61 Year
  Sex: Female
  Weight: 74.8 kg

DRUGS (4)
  1. NEXIUM [Suspect]
     Route: 048
     Dates: start: 20050901
  2. FLONASE [Concomitant]
  3. HYDROCHLOROTHIAZIDE [Concomitant]
  4. TOPROL-XL [Concomitant]

REACTIONS (2)
  - ABDOMINAL PAIN [None]
  - POSTMENOPAUSAL HAEMORRHAGE [None]
